FAERS Safety Report 6671884-1 (Version None)
Quarter: 2010Q2

REPORT INFORMATION
  Report Type: 
  Country: None (occurrence: None)
  Receive Date: 20100407
  Receipt Date: 20100326
  Transmission Date: 20101027
  Serious: Yes (Other)
  Sender: FDA-Public Use
  Company Number: AU-PFIZER INC-2010039243

PATIENT
  Sex: Female

DRUGS (4)
  1. CHAMPIX [Suspect]
     Dosage: UNK
  2. LEXAPRO [Concomitant]
  3. ALODORM [Concomitant]
  4. ALPRAZOLAM [Concomitant]

REACTIONS (8)
  - ABDOMINAL PAIN UPPER [None]
  - CONSTIPATION [None]
  - EYE PAIN [None]
  - FEELING OF BODY TEMPERATURE CHANGE [None]
  - HEADACHE [None]
  - HYPERHIDROSIS [None]
  - INSOMNIA [None]
  - STOMACH MASS [None]
